FAERS Safety Report 7504795-X (Version None)
Quarter: 2011Q2

REPORT INFORMATION
  Report Type: 
  Country: None (occurrence: None)
  Receive Date: 20110525
  Receipt Date: 20110208
  Transmission Date: 20111010
  Serious: Yes (Other)
  Sender: FDA-Public Use
  Company Number: US-AMGEN-USASP2011007578

PATIENT

DRUGS (1)
  1. ARANESP [Suspect]
     Indication: DIALYSIS
     Dosage: UNK

REACTIONS (2)
  - DYSPNOEA [None]
  - COUGH [None]
